FAERS Safety Report 9602338 (Version 1)
Quarter: 2013Q4

REPORT INFORMATION
  Report Type: Spontaneous
  Country: US (occurrence: US)
  Receive Date: 20131007
  Receipt Date: 20131007
  Transmission Date: 20140711
  Serious: No
  Sender: FDA-Public Use
  Company Number: US-GLAXOSMITHKLINE-A1033953A

PATIENT
  Age: 42 Year
  Sex: Female

DRUGS (8)
  1. BENLYSTA [Suspect]
     Indication: SYSTEMIC LUPUS ERYTHEMATOSUS
     Route: 042
     Dates: start: 20130205
  2. PREDNISONE [Concomitant]
  3. CELLCEPT [Concomitant]
  4. SULFASALAZINE [Concomitant]
  5. POTASSIUM [Concomitant]
  6. UNKNOWN MEDICATION [Concomitant]
  7. PROPRANOLOL [Concomitant]
  8. REGLAN [Concomitant]

REACTIONS (6)
  - Drug ineffective [Unknown]
  - Arthralgia [Unknown]
  - Musculoskeletal stiffness [Unknown]
  - Fatigue [Unknown]
  - Butterfly rash [Unknown]
  - Condition aggravated [Unknown]
